FAERS Safety Report 21303044 (Version 1)
Quarter: 2022Q3

REPORT INFORMATION
  Report Type: Spontaneous
  Country: JP (occurrence: JP)
  Receive Date: 20220907
  Receipt Date: 20220907
  Transmission Date: 20221026
  Serious: Yes (Hospitalization)
  Sender: FDA-Public Use
  Company Number: JP-ELI_LILLY_AND_COMPANY-JP202208011033

PATIENT
  Age: 94 Year
  Sex: Female

DRUGS (1)
  1. RETEVMO [Suspect]
     Active Substance: SELPERCATINIB
     Indication: Thyroid cancer
     Dosage: 320 MG, UNKNOWN
     Route: 048
     Dates: start: 20220809, end: 20220823

REACTIONS (4)
  - Tumour necrosis [Unknown]
  - Abscess neck [Not Recovered/Not Resolved]
  - Oropharyngeal fistula [Not Recovered/Not Resolved]
  - Glossitis [Unknown]

NARRATIVE: CASE EVENT DATE: 20220823
